FAERS Safety Report 10086289 (Version 2)
Quarter: 2014Q2

REPORT INFORMATION
  Report Type: Report from Study
  Country: FR (occurrence: FR)
  Receive Date: 20140418
  Receipt Date: 20140502
  Transmission Date: 20141212
  Serious: Yes (Other)
  Sender: FDA-Public Use
  Company Number: FR-MPIJNJ-2014JNJ001811

PATIENT
  Sex: 0

DRUGS (7)
  1. VELCADE [Suspect]
     Indication: PLASMA CELL MYELOMA
     Dosage: 2.4 MG, UNK
     Route: 065
     Dates: start: 20101209, end: 20120301
  2. REVLIMID [Suspect]
     Indication: PLASMA CELL MYELOMA
     Dosage: 25 MG, UNK
     Route: 065
     Dates: start: 20101209, end: 20120301
  3. DEXAMETHASONE [Suspect]
     Indication: PLASMA CELL MYELOMA
     Dosage: UNK
     Route: 065
     Dates: start: 20101206, end: 201308
  4. BENDAMUSTINE [Suspect]
     Indication: PLASMA CELL MYELOMA
     Dosage: UNK
     Route: 065
     Dates: start: 201205, end: 201308
  5. MELPHALAN [Suspect]
     Indication: PLASMA CELL MYELOMA
     Dosage: 70 MG, UNK
     Route: 065
     Dates: start: 20110217
  6. CALCIPARINE [Concomitant]
     Dosage: UNK
     Route: 065
     Dates: start: 20101209
  7. ENDOXAN                            /00021101/ [Concomitant]
     Indication: PLASMA CELL MYELOMA
     Dosage: UNK G, UNK
     Route: 065
     Dates: start: 20110929, end: 20111124

REACTIONS (1)
  - B-cell lymphoma [Not Recovered/Not Resolved]
